FAERS Safety Report 8491757-1 (Version None)
Quarter: 2012Q3

REPORT INFORMATION
  Report Type: 
  Country: None (occurrence: None)
  Receive Date: 20120706
  Receipt Date: 20120625
  Transmission Date: 20120928
  Serious: Yes (Other)
  Sender: FDA-Public Use
  Company Number: BR-AMGEN-BRASP2012040711

PATIENT
  Age: 70 Year
  Sex: Female
  Weight: 58 kg

DRUGS (6)
  1. PREDNISONE TAB [Concomitant]
     Dosage: 2.5 MG, 1X/DAY
  2. INSULIN [Concomitant]
     Indication: DIABETES MELLITUS
     Dosage: UNK
  3. NIFEDIPINE [Concomitant]
     Indication: HYPERTENSION
     Dosage: UNSPECIFIED DOSAGE, 1X/DAY
  4. ENBREL [Suspect]
     Indication: RHEUMATOID ARTHRITIS
     Dosage: 50 MG, ONCE WEEKLY
     Route: 058
     Dates: start: 20120401, end: 20120401
  5. CAPTOPRIL [Concomitant]
     Indication: HYPERTENSION
     Dosage: 2 TABLETS OF 2.5MG EACH 3 HOURS (8X/DAY)
  6. CEBRALAT [Concomitant]
     Indication: PERIPHERAL VASCULAR DISORDER
     Dosage: UNSPECIFIED DOSAGE, 1X/DAY

REACTIONS (2)
  - BONE DISORDER [None]
  - GAIT DISTURBANCE [None]
